FAERS Safety Report 5201322-7 (Version None)
Quarter: 2006Q4

REPORT INFORMATION
  Report Type: 
  Country: None (occurrence: None)
  Receive Date: 20061016
  Receipt Date: 20060714
  Transmission Date: 20070319
  Serious: No
  Sender: FDA-Public Use
  Company Number: 2006SP002711

PATIENT
  Age: 75 Year
  Sex: Male
  Weight: 74.3899 kg

DRUGS (7)
  1. LUNESTA [Suspect]
     Indication: INSOMNIA
     Dosage: 2 MG HS ORAL
     Route: 048
     Dates: start: 20060601, end: 20060601
  2. NEXIUM [Concomitant]
  3. ATORVASTATIN CALCIUM [Concomitant]
  4. LISINOPRIL [Concomitant]
  5. METOPROLOL SUCCINATE [Concomitant]
  6. XANAX [Concomitant]
  7. LIBRAX [Concomitant]

REACTIONS (1)
  - MIDDLE INSOMNIA [None]
